FAERS Safety Report 7031692-9 (Version None)
Quarter: 2010Q4

REPORT INFORMATION
  Report Type: 
  Country: None (occurrence: None)
  Receive Date: 20101001
  Receipt Date: 20100920
  Transmission Date: 20110411
  Serious: Yes (Other)
  Sender: FDA-Public Use
  Company Number: 1000016484

PATIENT
  Age: 53 Year
  Sex: Male

DRUGS (2)
  1. ESCITALOPRAM [Suspect]
     Indication: MAJOR DEPRESSION
     Dosage: 10 MG (10 MG, 1 IN 1 D), ORAL
     Route: 048
     Dates: start: 20100722
  2. XANAX [Suspect]

REACTIONS (4)
  - ARTHRALGIA [None]
  - ERECTILE DYSFUNCTION [None]
  - HAEMATOSPERMIA [None]
  - MYALGIA [None]
